FAERS Safety Report 7458566-3 (Version None)
Quarter: 2011Q2

REPORT INFORMATION
  Report Type: 
  Country: None (occurrence: None)
  Receive Date: 20110504
  Receipt Date: 20110502
  Transmission Date: 20111010
  Serious: Yes (Hospitalization, Other)
  Sender: FDA-Public Use
  Company Number: GR-ABBOTT-11P-066-0699744-00

PATIENT
  Age: 56 Year
  Sex: Male
  Weight: 113 kg

DRUGS (4)
  1. IRBESARTAN [Concomitant]
     Indication: HYPERTENSION
     Route: 048
  2. TIOTROPIUM BROMIDE [Concomitant]
     Indication: CHRONIC OBSTRUCTIVE PULMONARY DISEASE
     Route: 055
  3. HUMIRA [Suspect]
     Indication: PSORIASIS
     Route: 058
     Dates: start: 20101213
  4. DILTIAZEM [Concomitant]
     Indication: HYPERTENSION
     Route: 048

REACTIONS (8)
  - HEPATOSPLENOMEGALY [None]
  - EOSINOPHILIA [None]
  - ASTHENIA [None]
  - THROMBOCYTOSIS [None]
  - LOWER RESPIRATORY TRACT INFECTION [None]
  - CHILLS [None]
  - LEUKOCYTOSIS [None]
  - LYMPHADENOPATHY [None]
